FAERS Safety Report 8603219-9 (Version None)
Quarter: 2012Q3

REPORT INFORMATION
  Report Type: 
  Country: None (occurrence: None)
  Receive Date: 20120817
  Receipt Date: 20120810
  Transmission Date: 20120928
  Serious: Yes (Hospitalization)
  Sender: FDA-Public Use
  Company Number: US-ELI_LILLY_AND_COMPANY-US201207003827

PATIENT
  Sex: Male
  Weight: 53.243 kg

DRUGS (2)
  1. NOVOLOG [Concomitant]
     Indication: DIABETES MELLITUS
     Route: 058
  2. HUMATROPE [Suspect]
     Dosage: 2.7 MG, QD
     Route: 058
     Dates: start: 20081201, end: 20120323

REACTIONS (2)
  - TYPE 1 DIABETES MELLITUS [None]
  - CARCINOID TUMOUR PULMONARY [None]
